FAERS Safety Report 18598162 (Version 2)
Quarter: 2021Q1

REPORT INFORMATION
  Report Type: Spontaneous
  Country: US (occurrence: US)
  Receive Date: 20201209
  Receipt Date: 20210119
  Transmission Date: 20210419
  Serious: Yes (Death, Hospitalization, Disabling, Other)
  Sender: FDA-Public Use
  Company Number: US-009507513-2012USA001935

PATIENT
  Age: 79 Year
  Sex: Male

DRUGS (1)
  1. KEYTRUDA [Suspect]
     Active Substance: PEMBROLIZUMAB
     Indication: METASTATIC MALIGNANT MELANOMA
     Dosage: UNK

REACTIONS (9)
  - Immune-mediated myositis [Recovering/Resolving]
  - Upper gastrointestinal haemorrhage [Unknown]
  - Atrioventricular block complete [Fatal]
  - Immune-mediated gastritis [Unknown]
  - Immune-mediated hepatitis [Recovering/Resolving]
  - Immune-mediated myocarditis [Fatal]
  - Erosive duodenitis [Unknown]
  - Myasthenia gravis [Fatal]
  - Pulmonary embolism [Unknown]
